FAERS Safety Report 7800165-5 (Version None)
Quarter: 2011Q4

REPORT INFORMATION
  Report Type: 
  Country: None (occurrence: None)
  Receive Date: 20111006
  Receipt Date: 20111003
  Transmission Date: 20120403
  Serious: Yes (Death, Disabling)
  Sender: FDA-Public Use
  Company Number: US-MERCK-1110USA00594

PATIENT
  Sex: Male

DRUGS (1)
  1. FOSAMAX [Suspect]
     Route: 048
     Dates: start: 20050101, end: 20100101

REACTIONS (2)
  - FEMUR FRACTURE [None]
  - DEATH [None]
